FAERS Safety Report 19447486 (Version 1)
Quarter: 2021Q2

REPORT INFORMATION
  Report Type: Spontaneous
  Country: GB (occurrence: GB)
  Receive Date: 20210622
  Receipt Date: 20210622
  Transmission Date: 20210717
  Serious: Yes (Other)
  Sender: FDA-Public Use
  Company Number: GB-BEH-2021132881

PATIENT
  Age: 44 Year
  Sex: Female
  Weight: 60 kg

DRUGS (3)
  1. DAKTARIN [MICONAZOLE NITRATE] [Suspect]
     Active Substance: MICONAZOLE NITRATE
     Indication: ROSACEA
     Route: 061
  2. ANTI?D IMMUNOGLOBULIN (INN) [Suspect]
     Active Substance: HUMAN RHO(D) IMMUNE GLOBULIN
     Indication: ROSACEA
     Route: 065
  3. DEPO?MEDRONE [Concomitant]
     Active Substance: METHYLPREDNISOLONE

REACTIONS (19)
  - Eye pruritus [Recovering/Resolving]
  - Chapped lips [Recovering/Resolving]
  - Dry skin [Recovering/Resolving]
  - Pain of skin [Recovering/Resolving]
  - Swelling face [Recovering/Resolving]
  - Lip pain [Recovering/Resolving]
  - Condition aggravated [Recovering/Resolving]
  - Nodular rash [Recovering/Resolving]
  - Erythema [Recovering/Resolving]
  - Hypersensitivity [Recovering/Resolving]
  - No adverse event [Unknown]
  - Rash [Recovering/Resolving]
  - Seborrhoeic dermatitis [Recovering/Resolving]
  - Rash [Recovering/Resolving]
  - Rash [Recovering/Resolving]
  - Off label use [Unknown]
  - Periorbital swelling [Recovering/Resolving]
  - Rash erythematous [Recovering/Resolving]
  - Sensitive skin [Recovering/Resolving]

NARRATIVE: CASE EVENT DATE: 20210504
